APPROVED DRUG PRODUCT: ALOSETRON HYDROCHLORIDE
Active Ingredient: ALOSETRON HYDROCHLORIDE
Strength: EQ 1MG BASE
Dosage Form/Route: TABLET;ORAL
Application: A206647 | Product #002 | TE Code: AB
Applicant: AMNEAL PHARMACEUTICALS OF NEW YORK LLC
Approved: Dec 22, 2016 | RLD: No | RS: No | Type: RX